FAERS Safety Report 14635852 (Version 1)
Quarter: 2018Q1

REPORT INFORMATION
  Report Type: Spontaneous
  Country: GB (occurrence: GB)
  Receive Date: 20180314
  Receipt Date: 20180314
  Transmission Date: 20180509
  Serious: Yes (Other)
  Sender: FDA-Public Use
  Company Number: GB-AUROBINDO-AUR-APL-2018-013947

PATIENT
  Age: 80 Year
  Sex: Female

DRUGS (1)
  1. FLECAINIDE ACETATE TABLETS 100MG [Suspect]
     Active Substance: FLECAINIDE ACETATE
     Dosage: STRENGTH: 50 MG,DOSE: 50 MG OD
     Route: 048
     Dates: start: 201605

REACTIONS (7)
  - Paraesthesia [Unknown]
  - Hypoaesthesia [Unknown]
  - Wrong technique in product usage process [None]
  - Alopecia [Not Recovered/Not Resolved]
  - Wrong technique in product usage process [Unknown]
  - Amnesia [Unknown]
  - Hypoaesthesia [None]

NARRATIVE: CASE EVENT DATE: 201605
